FAERS Safety Report 7769428 (Version 30)
Quarter: 2014Q2

REPORT INFORMATION
  Report Type: Report from Study
  Country: CA (occurrence: CA)
  Receive Date: 20110121
  Receipt Date: 20140508
  Transmission Date: 20141212
  Serious: Yes (Death, Hospitalization, Other)
  Sender: FDA-Public Use
  Company Number: PHHY2011CA02820

PATIENT
  Age: 81 Year
  Sex: Male

DRUGS (8)
  1. SANDOSTATIN LAR [Suspect]
     Indication: NEUROENDOCRINE TUMOUR
     Dosage: 30 MG, EVERY 4 WEEKS
     Route: 030
     Dates: start: 20100922
  2. SANDOSTATIN LAR [Suspect]
     Dosage: 30 MG, QMO
     Route: 030
  3. SANDOSTATIN LAR [Suspect]
     Dosage: UNK UKN, EVERY 3 WEEKS
     Route: 030
  4. SANDOSTATIN LAR [Suspect]
     Dosage: 40 MG, EVERY 3 WEEKS
     Route: 030
  5. SANDOSTATIN LAR [Suspect]
     Dosage: 30 MG, EVERY 4 WEEKS, QMO
     Route: 030
     Dates: end: 20140205
  6. HYDROMORPHONE [Concomitant]
     Dosage: 1 MG, Q4H
  7. VOLTAREN [Concomitant]
     Dosage: UNK UKN, UNK
  8. COUMADIN [Concomitant]
     Dosage: UNK UKN, UNK

REACTIONS (36)
  - Death [Fatal]
  - Gout [Unknown]
  - Asthenia [Unknown]
  - Joint swelling [Unknown]
  - Pain in extremity [Unknown]
  - Lung infection [Unknown]
  - Malaise [Unknown]
  - Pneumonia [Unknown]
  - Respiratory disorder [Unknown]
  - Oedema [Unknown]
  - Dyspnoea exertional [Unknown]
  - Diarrhoea [Unknown]
  - Bronchitis [Recovering/Resolving]
  - Blood pressure diastolic decreased [Unknown]
  - Total lung capacity decreased [Unknown]
  - Neoplasm [Unknown]
  - Malignant neoplasm progression [Unknown]
  - Hepatic neoplasm [Unknown]
  - Respiratory rate increased [Unknown]
  - Cough [Unknown]
  - Peripheral swelling [Unknown]
  - Blood test abnormal [Unknown]
  - Contusion [Unknown]
  - Scratch [Unknown]
  - Haemorrhage [Unknown]
  - Acne [Unknown]
  - Gait disturbance [Unknown]
  - Arthralgia [Unknown]
  - Scab [Unknown]
  - Inflammation [Unknown]
  - Weight decreased [Unknown]
  - Pruritus [Unknown]
  - Heart rate decreased [Unknown]
  - Dyspnoea [Unknown]
  - Abdominal pain [Recovered/Resolved]
  - Vomiting [Recovered/Resolved]
